FAERS Safety Report 4762603-4 (Version None)
Quarter: 2005Q3

REPORT INFORMATION
  Report Type: 
  Country: None (occurrence: None)
  Receive Date: 20050907
  Receipt Date: 20050831
  Transmission Date: 20060218
  Serious: Yes (Other)
  Sender: FDA-Public Use
  Company Number: US-GLAXOSMITHKLINE-A0572568A

PATIENT
  Sex: Female

DRUGS (4)
  1. WELLBUTRIN [Suspect]
     Indication: DEPRESSION
     Dosage: 350MG PER DAY
     Route: 048
  2. TRAZODONE [Concomitant]
  3. XANAX [Concomitant]
  4. FOSAMAX [Concomitant]

REACTIONS (8)
  - AGITATION [None]
  - ANXIETY [None]
  - CLAUSTROPHOBIA [None]
  - DEPRESSION [None]
  - DRUG INEFFECTIVE [None]
  - EMOTIONAL DISORDER [None]
  - SOMNOLENCE [None]
  - SUICIDAL IDEATION [None]
